FAERS Safety Report 17542365 (Version 3)
Quarter: 2020Q4

REPORT INFORMATION
  Report Type: Report from Study
  Country: JP (occurrence: JP)
  Receive Date: 20200313
  Receipt Date: 20201106
  Transmission Date: 20210113
  Serious: Yes (Other)
  Sender: FDA-Public Use
  Company Number: JP-SEATTLE GENETICS-2020SGN01479

PATIENT
  Age: 84 Year
  Sex: Male
  Weight: 56.4 kg

DRUGS (10)
  1. DOXORUBICIN HYDROCHLORIDE. [Suspect]
     Active Substance: DOXORUBICIN HYDROCHLORIDE
     Dosage: 12.5 MILLIGRAM/SQ. METER
     Route: 065
     Dates: start: 20190727
  2. BRENTUXIMAB VEDOTIN [Suspect]
     Active Substance: BRENTUXIMAB VEDOTIN
     Indication: HODGKIN^S DISEASE STAGE III
     Dosage: 0.8 MILLIGRAM/KILOGRAM
     Route: 041
     Dates: start: 20190713, end: 20190713
  3. VINBLASTINE SULFATE. [Suspect]
     Active Substance: VINBLASTINE SULFATE
     Indication: HODGKIN^S DISEASE STAGE III
     Dosage: 4 MILLIGRAM/SQ. METER
     Route: 065
     Dates: start: 20190713, end: 20190713
  4. FLUCONAZOLE. [Concomitant]
     Active Substance: FLUCONAZOLE
     Indication: INFECTION PROPHYLAXIS
     Dosage: UNK
     Route: 065
     Dates: start: 20190712
  5. BAKTAR [Concomitant]
     Active Substance: SULFAMETHOXAZOLE\TRIMETHOPRIM
     Indication: INFECTION PROPHYLAXIS
     Dosage: UNK
     Route: 065
     Dates: start: 20190712
  6. VINBLASTINE SULFATE. [Suspect]
     Active Substance: VINBLASTINE SULFATE
     Dosage: 3 MILLIGRAM/SQ. METER
     Route: 065
     Dates: start: 20190727
  7. DACARBAZINE. [Suspect]
     Active Substance: DACARBAZINE
     Dosage: 187.5 MILLIGRAM/SQ. METER
     Route: 065
     Dates: start: 20190727
  8. DACARBAZINE. [Suspect]
     Active Substance: DACARBAZINE
     Indication: HODGKIN^S DISEASE STAGE III
     Dosage: 250 MILLIGRAM/SQ. METER
     Route: 065
     Dates: start: 20190713, end: 20190713
  9. BRENTUXIMAB VEDOTIN [Suspect]
     Active Substance: BRENTUXIMAB VEDOTIN
     Dosage: 0.6 MILLIGRAM/KILOGRAM
     Route: 041
     Dates: start: 20190727
  10. DOXORUBICIN HYDROCHLORIDE. [Suspect]
     Active Substance: DOXORUBICIN HYDROCHLORIDE
     Indication: HODGKIN^S DISEASE STAGE III
     Dosage: 16.6 MILLIGRAM/SQ. METER
     Route: 065
     Dates: start: 20190713, end: 20190713

REACTIONS (2)
  - Neutrophil count decreased [Recovered/Resolved]
  - Neutrophil count decreased [Recovered/Resolved]

NARRATIVE: CASE EVENT DATE: 20190716
